FAERS Safety Report 19795102 (Version 1)
Quarter: 2021Q3

REPORT INFORMATION
  Report Type: Spontaneous
  Country: DE (occurrence: DE)
  Receive Date: 20210907
  Receipt Date: 20210907
  Transmission Date: 20211014
  Serious: Yes (Other)
  Sender: FDA-Public Use
  Company Number: DE-TEVA-2021-DE-1948584

PATIENT
  Age: 58 Year
  Sex: Female

DRUGS (1)
  1. TAMOXIFEN [Suspect]
     Active Substance: TAMOXIFEN
     Dates: start: 20210424

REACTIONS (14)
  - Renal impairment [Unknown]
  - Cholelithiasis [Unknown]
  - Compression garment application [Unknown]
  - Arthralgia [Recovered/Resolved]
  - Fatigue [Unknown]
  - Hepatic steatosis [Unknown]
  - Constipation [Unknown]
  - Visual impairment [Unknown]
  - Poor quality sleep [Unknown]
  - Hot flush [Unknown]
  - Cataract [Unknown]
  - Blood parathyroid hormone increased [Unknown]
  - Weight increased [Unknown]
  - Bone density decreased [Unknown]

NARRATIVE: CASE EVENT DATE: 2021
